FAERS Safety Report 7309412-X (Version None)
Quarter: 2011Q1

REPORT INFORMATION
  Report Type: 
  Country: None (occurrence: None)
  Receive Date: 20110223
  Receipt Date: 20110215
  Transmission Date: 20110831
  Serious: Yes (Other)
  Sender: FDA-Public Use
  Company Number: US-GENENTECH-306516

PATIENT
  Sex: Female

DRUGS (1)
  1. OMALIZUMAB [Suspect]
     Indication: ASTHMA
     Dosage: UNK
     Dates: end: 20100108

REACTIONS (3)
  - WEIGHT DECREASED [None]
  - ASTHENIA [None]
  - BILIARY TRACT DISORDER [None]
